FAERS Safety Report 6394807-1 (Version None)
Quarter: 2009Q4

REPORT INFORMATION
  Report Type: 
  Country: None (occurrence: None)
  Receive Date: 20091009
  Receipt Date: 20090923
  Transmission Date: 20100525
  Serious: Yes (Hospitalization)
  Sender: FDA-Public Use
  Company Number: PHEH2009US10888

PATIENT
  Sex: Male
  Weight: 70.295 kg

DRUGS (10)
  1. RECLAST [Suspect]
     Indication: OSTEOPOROSIS
     Dosage: UNK
     Route: 042
     Dates: start: 20090828
  2. TYLENOL (CAPLET) [Suspect]
     Dosage: UNK, UNK
     Dates: end: 20090915
  3. CRESTOR [Suspect]
     Dosage: UNK, UNK
     Dates: end: 20090915
  4. SINGULAIR [Concomitant]
  5. ASPIRIN [Concomitant]
     Dosage: 10 MG, QD
     Route: 048
  6. PLAVIX [Concomitant]
     Dosage: 75 MG, QD
     Route: 048
  7. PROTONIX [Concomitant]
     Dosage: 40 MG, QD
     Route: 048
  8. TOPROL-XL [Concomitant]
     Dosage: 12.5 MG, QD
     Route: 048
  9. PULMICORT [Concomitant]
     Dosage: ONE PUFF DAILY
  10. ZETIA [Concomitant]
     Dosage: 10 MG, QD

REACTIONS (6)
  - ACTIVATED PARTIAL THROMBOPLASTIN TIME PROLONGED [None]
  - LIVER FUNCTION TEST ABNORMAL [None]
  - MYALGIA [None]
  - PAIN [None]
  - PROTHROMBIN TIME PROLONGED [None]
  - PYREXIA [None]
